FAERS Safety Report 5221840-5 (Version None)
Quarter: 2007Q1

REPORT INFORMATION
  Report Type: 
  Country: None (occurrence: None)
  Receive Date: 20070125
  Receipt Date: 20070125
  Transmission Date: 20070707
  Serious: Yes (Other)
  Sender: FDA-Public Use
  Company Number: None

PATIENT
  Sex: Male
  Weight: 81.6475 kg

DRUGS (2)
  1. CALTRATE 600-D CALCIUM SUPPLEMEN 600 MG WYETH [Suspect]
     Indication: OSTEOPOROSIS
     Dosage: 1 PILL ONCE A DAY PO
     Route: 048
     Dates: start: 20061101, end: 20061229
  2. FOSAMAX [Concomitant]

REACTIONS (3)
  - CALCINOSIS [None]
  - IMPLANT SITE REACTION [None]
  - VISION BLURRED [None]
